FAERS Safety Report 7103167-X (Version None)
Quarter: 2010Q4

REPORT INFORMATION
  Report Type: 
  Country: None (occurrence: None)
  Receive Date: 20101115
  Receipt Date: 20101105
  Transmission Date: 20110411
  Serious: Yes (Other)
  Sender: FDA-Public Use
  Company Number: JP-MERCK-1011USA01308

PATIENT
  Age: 77 Year
  Sex: Female

DRUGS (1)
  1. JANUVIA [Suspect]
     Dosage: DAILY DOSAGE IS UNCERTAIN DURING A DAY
     Route: 048

REACTIONS (1)
  - HYPOGLYCAEMIA [None]
